FAERS Safety Report 5296349-3 (Version None)
Quarter: 2007Q2

REPORT INFORMATION
  Report Type: 
  Country: None (occurrence: None)
  Receive Date: 20070413
  Receipt Date: 20070409
  Transmission Date: 20071010
  Serious: Yes (Hospitalization)
  Sender: FDA-Public Use
  Company Number: KR-MERCK-0704KOR00005

PATIENT
  Age: 72 Year
  Sex: Female

DRUGS (1)
  1. FOSAMAX PLUS D [Suspect]
     Indication: OSTEOPOROSIS
     Route: 048
     Dates: start: 20070407, end: 20070407

REACTIONS (4)
  - ARTHRALGIA [None]
  - HEADACHE [None]
  - MYALGIA [None]
  - PYREXIA [None]
